FAERS Safety Report 16038189 (Version 1)
Quarter: 2019Q1

REPORT INFORMATION
  Report Type: Report from Study
  Country: DE (occurrence: DE)
  Receive Date: 20190305
  Receipt Date: 20190305
  Transmission Date: 20190418
  Serious: Yes (Hospitalization)
  Sender: FDA-Public Use
  Company Number: DE-PFIZER INC-2019088735

PATIENT
  Age: 55 Year
  Sex: Female
  Weight: 53 kg

DRUGS (6)
  1. PACLITAXEL. [Suspect]
     Active Substance: PACLITAXEL
     Indication: OVARIAN CANCER
     Dosage: 260 MG, EVERY 3 WEEKS
     Route: 042
     Dates: start: 20131113
  2. DEXAMETHASONE. [Concomitant]
     Active Substance: DEXAMETHASONE
     Indication: PROPHYLAXIS
     Dosage: 20 MG, EVERY 3 WEEKS
     Route: 042
  3. AVASTIN [Suspect]
     Active Substance: BEVACIZUMAB
     Indication: OVARIAN CANCER
     Dosage: 795 MG, EVERY 3 WEEKS
     Route: 042
     Dates: start: 20131114
  4. TAVEGIL [CLEMASTINE FUMARATE] [Concomitant]
     Indication: PROPHYLAXIS
     Dosage: 1 DF, EVERY 3 WEEKS
     Route: 042
  5. CARBOPLATIN. [Suspect]
     Active Substance: CARBOPLATIN
     Dosage: 522 MG, EVERY 3 WEEKS
     Route: 042
     Dates: start: 20131113
  6. ONDANSETRON [Concomitant]
     Active Substance: ONDANSETRON
     Indication: PROPHYLAXIS
     Dosage: 8 MG, EVERY 3 WEEKS
     Route: 048
     Dates: start: 20131113, end: 20131205

REACTIONS (2)
  - Ileus [Unknown]
  - Intestinal perforation [Not Recovered/Not Resolved]

NARRATIVE: CASE EVENT DATE: 20131206
